FAERS Safety Report 7811171-9 (Version None)
Quarter: 2011Q4

REPORT INFORMATION
  Report Type: 
  Country: None (occurrence: None)
  Receive Date: 20111013
  Receipt Date: 20111010
  Transmission Date: 20120403
  Serious: Yes (Death, Other)
  Sender: FDA-Public Use
  Company Number: PHEH2011US06395

PATIENT
  Sex: Male

DRUGS (1)
  1. EXTAVIA [Suspect]
     Indication: MULTIPLE SCLEROSIS

REACTIONS (4)
  - DEATH [None]
  - FALL [None]
  - BRAIN STEM SYNDROME [None]
  - CEREBRAL HAEMORRHAGE [None]
